FAERS Safety Report 6885948-0 (Version None)
Quarter: 2010Q3

REPORT INFORMATION
  Report Type: 
  Country: None (occurrence: None)
  Receive Date: 20100729
  Receipt Date: 20090206
  Transmission Date: 20110219
  Serious: Yes (Other)
  Sender: FDA-Public Use
  Company Number: US-PFIZER INC-2009166465

PATIENT
  Sex: Male
  Weight: 108.86 kg

DRUGS (8)
  1. CELEBREX [Suspect]
     Dosage: 200 MG, 2X/DAY
  2. GLUCOPHAGE [Concomitant]
     Dosage: UNK
  3. LEVOXYL [Concomitant]
     Dosage: UNK
  4. RAMIPRIL [Concomitant]
     Dosage: UNK
  5. NEXIUM [Concomitant]
     Dosage: UNK
  6. ARIXTRA [Concomitant]
     Dosage: UNK
  7. CELEXA [Concomitant]
     Dosage: UNK
  8. HEPARIN SODIUM [Concomitant]
     Dosage: UNK

REACTIONS (1)
  - PULMONARY EMBOLISM [None]
